FAERS Safety Report 13732396 (Version 3)
Quarter: 2018Q1

REPORT INFORMATION
  Report Type: Spontaneous
  Country: US (occurrence: US)
  Receive Date: 20170707
  Receipt Date: 20180105
  Transmission Date: 20180508
  Serious: No
  Sender: FDA-Public Use
  Company Number: US-SA-2017SA104053

PATIENT
  Sex: Female

DRUGS (1)
  1. DUPIXENT [Suspect]
     Active Substance: DUPILUMAB
     Route: 058

REACTIONS (5)
  - Injection site haemorrhage [Unknown]
  - Eye pruritus [Unknown]
  - Lacrimation increased [Unknown]
  - Conjunctivitis [Unknown]
  - Eye irritation [Unknown]
